FAERS Safety Report 9847102 (Version 1)
Quarter: 2014Q1

REPORT INFORMATION
  Report Type: Report from Study
  Country: ES (occurrence: ES)
  Receive Date: 20140127
  Receipt Date: 20140127
  Transmission Date: 20141002
  Serious: Yes (Death)
  Sender: FDA-Public Use
  Company Number: ES-TEVA-455239ISR

PATIENT
  Age: 70 Year
  Sex: Female
  Weight: 56 kg

DRUGS (13)
  1. MYOCET [Suspect]
     Indication: DIFFUSE LARGE B-CELL LYMPHOMA
     Route: 042
     Dates: start: 20131219, end: 20131219
  2. PREDNISONE [Suspect]
     Indication: DIFFUSE LARGE B-CELL LYMPHOMA
     Route: 048
     Dates: start: 20131219, end: 20131223
  3. CYCLOPHOSPHAMIDE [Suspect]
     Indication: DIFFUSE LARGE B-CELL LYMPHOMA
     Route: 042
     Dates: start: 20131219, end: 20131219
  4. VINCRISTINE [Suspect]
     Indication: DIFFUSE LARGE B-CELL LYMPHOMA
     Route: 042
     Dates: start: 20131219, end: 20131219
  5. RITUXIMAB [Suspect]
     Indication: DIFFUSE LARGE B-CELL LYMPHOMA
     Route: 042
     Dates: start: 20131219, end: 20131219
  6. MEROPENEM [Concomitant]
     Indication: PROPHYLAXIS
     Route: 042
  7. TEICOPLANIN [Concomitant]
     Indication: PROPHYLAXIS
     Route: 042
  8. LEVOFLOXACIN [Concomitant]
     Indication: PROPHYLAXIS
     Route: 042
  9. ACICLOVIR [Concomitant]
     Indication: PROPHYLAXIS
     Route: 042
  10. FLUCONAZOL [Concomitant]
     Indication: PROPHYLAXIS
     Route: 042
  11. ISONIAZIDE [Concomitant]
     Route: 042
  12. RIFAMPICINE [Concomitant]
     Route: 042
  13. PYRAZINAMIDE [Concomitant]
     Route: 048

REACTIONS (1)
  - Septic shock [Fatal]
